FAERS Safety Report 10995234 (Version 1)
Quarter: 2015Q2

REPORT INFORMATION
  Report Type: Spontaneous
  Country: AU (occurrence: AU)
  Receive Date: 20150407
  Receipt Date: 20150407
  Transmission Date: 20150821
  Serious: Yes (Other)
  Sender: FDA-Public Use
  Company Number: AU-SYMPLMED PHARMACEUTICALS-2015SYM00060

PATIENT
  Age: 77 Year
  Sex: Female

DRUGS (4)
  1. ACEON [Suspect]
     Active Substance: PERINDOPRIL ERBUMINE
     Dosage: 7.5 MG, QD
     Route: 048
     Dates: start: 201501, end: 20150202
  2. ACEON [Suspect]
     Active Substance: PERINDOPRIL ERBUMINE
     Indication: HYPERTENSION
     Dosage: 5 MG, QD
     Route: 048
     Dates: start: 2011, end: 201501
  3. PROGYNOVA [Concomitant]
     Active Substance: ESTRADIOL VALERATE
     Indication: POSTMENOPAUSE
     Dosage: UNK
     Dates: start: 2005
  4. LIPITOR [Concomitant]
     Active Substance: ATORVASTATIN CALCIUM
     Indication: HYPERCHOLESTEROLAEMIA
     Dosage: 10 MG, QD
     Dates: start: 2011

REACTIONS (2)
  - Hypertension [Recovered/Resolved]
  - Drug dose omission [Unknown]

NARRATIVE: CASE EVENT DATE: 20150203
